FAERS Safety Report 4569351-4 (Version None)
Quarter: 2005Q1

REPORT INFORMATION
  Report Type: 
  Country: None (occurrence: None)
  Receive Date: 20050203
  Receipt Date: 20050124
  Transmission Date: 20050727
  Serious: Yes (Other)
  Sender: FDA-Public Use
  Company Number: NL-GLAXOSMITHKLINE-B0369415A

PATIENT
  Age: 34 Year
  Sex: Female

DRUGS (5)
  1. IMIGRAN [Suspect]
     Indication: MIGRAINE
     Route: 065
     Dates: start: 20040602
  2. PROZAC [Suspect]
     Dosage: 20MG PER DAY
     Route: 065
     Dates: start: 20040825
  3. FLUOXETINE [Suspect]
     Indication: DEPRESSION
     Dates: start: 20040510, end: 20040825
  4. CYPROTERONE ACETATE + ETHINYLOESTRADIOL [Concomitant]
     Route: 065
  5. INDERM [Concomitant]
     Route: 065

REACTIONS (3)
  - CHEST DISCOMFORT [None]
  - PALPITATIONS [None]
  - SEROTONIN SYNDROME [None]
